FAERS Safety Report 25529184 (Version 2)
Quarter: 2025Q3

REPORT INFORMATION
  Report Type: Spontaneous
  Country: EU (occurrence: EU)
  Receive Date: 20250708
  Receipt Date: 20250803
  Transmission Date: 20251020
  Serious: Yes (Death)
  Sender: ALEXION PHARMACEUTICALS
  Company Number: EU-ASTRAZENECA-202507GLO003299FR

PATIENT
  Age: 99 Year
  Sex: Male
  Weight: 59.3 kg

DRUGS (13)
  1. OMEPRAZOLE [Suspect]
     Active Substance: OMEPRAZOLE
  2. PREDNISONE [Suspect]
     Active Substance: PREDNISONE
  3. MIDODRINE [Suspect]
     Active Substance: MIDODRINE
  4. WARFARIN [Suspect]
     Active Substance: WARFARIN
  5. BISOPROLOL [Suspect]
     Active Substance: BISOPROLOL
  6. PAROXETINE HYDROCHLORIDE [Suspect]
     Active Substance: PAROXETINE HYDROCHLORIDE
  7. ELIQUIS [Suspect]
     Active Substance: APIXABAN
  8. AMIODARONE HYDROCHLORIDE [Suspect]
     Active Substance: AMIODARONE HYDROCHLORIDE
  9. FUROSEMIDE [Suspect]
     Active Substance: FUROSEMIDE
  10. SILODOSIN [Suspect]
     Active Substance: SILODOSIN
  11. MIRTAZAPINE [Suspect]
     Active Substance: MIRTAZAPINE
  12. MOVICOL [Suspect]
     Active Substance: POLYETHYLENE GLYCOL 3350\POTASSIUM CHLORIDE\SODIUM BICARBONATE\SODIUM CHLORIDE
  13. LEVOTHYROXINE [Suspect]
     Active Substance: LEVOTHYROXINE

REACTIONS (3)
  - Wrong patient [Fatal]
  - Medication error [Fatal]
  - Death [Fatal]

NARRATIVE: CASE EVENT DATE: 20250611
